FAERS Safety Report 7656806-9 (Version None)
Quarter: 2011Q3

REPORT INFORMATION
  Report Type: 
  Country: None (occurrence: None)
  Receive Date: 20110801
  Receipt Date: 20110714
  Transmission Date: 20111222
  Serious: Yes (Other)
  Sender: FDA-Public Use
  Company Number: 2011MA008864

PATIENT
  Age: 45 Year
  Sex: Female

DRUGS (7)
  1. LEXAPRO [Concomitant]
  2. AMANTADINE HYDROCHLORIDE [Suspect]
  3. COPAXONE [Concomitant]
  4. WELLBUTRIN [Concomitant]
  5. NEURONTIN [Concomitant]
  6. CONCERTA [Concomitant]
  7. BACLOFEN [Concomitant]

REACTIONS (4)
  - VISION BLURRED [None]
  - ENDOTHELIAL DYSFUNCTION [None]
  - TOXICITY TO VARIOUS AGENTS [None]
  - CORNEAL OEDEMA [None]
